FAERS Safety Report 7465057-2 (Version None)
Quarter: 2011Q2

REPORT INFORMATION
  Report Type: 
  Country: None (occurrence: None)
  Receive Date: 20110509
  Receipt Date: 20110421
  Transmission Date: 20111010
  Serious: No
  Sender: FDA-Public Use
  Company Number: US-B.I. PHARMACEUTICALS,INC./RIDGEFIELD-2011-BP-03821BP

PATIENT
  Sex: Female

DRUGS (16)
  1. GLYBURIDE [Concomitant]
     Indication: DIABETES MELLITUS
  2. CELEBREX [Concomitant]
     Indication: ARTHRITIS
  3. LEVOTHYROXINE SODIUM [Concomitant]
     Indication: HYPOTHYROIDISM
  4. PRADAXA [Suspect]
     Indication: ATRIAL FIBRILLATION
     Dosage: 300 MG
     Route: 048
     Dates: start: 20110203
  5. JANUMET [Concomitant]
     Indication: DIABETES MELLITUS
  6. ZIAC [Concomitant]
     Indication: CARDIAC DISORDER
  7. DIGOXIN [Concomitant]
     Indication: ATRIAL FIBRILLATION
  8. VITAMINS [Concomitant]
     Indication: PROPHYLAXIS
  9. CALCIUM [Concomitant]
     Indication: PROPHYLAXIS
  10. PREVACID [Concomitant]
     Indication: PROPHYLAXIS
  11. VESICARE [Concomitant]
     Indication: INCONTINENCE
  12. JANUVIA [Concomitant]
     Indication: DIABETES MELLITUS
  13. ZOCOR [Concomitant]
     Indication: BLOOD CHOLESTEROL INCREASED
  14. URSODIOL [Concomitant]
     Indication: HEPATIC STEATOSIS
  15. FISH OIL [Concomitant]
     Indication: PROPHYLAXIS
  16. GRAPE SEED EXTRACT [Concomitant]
     Indication: PROPHYLAXIS

REACTIONS (1)
  - NASOPHARYNGITIS [None]
